FAERS Safety Report 12911821 (Version 1)
Quarter: 2016Q4

REPORT INFORMATION
  Report Type: Spontaneous
  Country: US (occurrence: US)
  Receive Date: 20161104
  Receipt Date: 20161104
  Transmission Date: 20170207
  Serious: No
  Sender: FDA-Public Use
  Company Number: US-BAYER-2016-211318

PATIENT
  Age: 33 Year
  Sex: Female
  Weight: 66.21 kg

DRUGS (1)
  1. ALEVE [Suspect]
     Active Substance: NAPROXEN SODIUM
     Indication: TOOTHACHE
     Dosage: 2 DF (2 AT 5:00AM AND 2 MORE AN HOUR)
     Route: 048

REACTIONS (3)
  - Drug ineffective [None]
  - Product use issue [None]
  - Drug ineffective [None]

NARRATIVE: CASE EVENT DATE: 20161102
